FAERS Safety Report 5883039-9 (Version None)
Quarter: 2008Q3

REPORT INFORMATION
  Report Type: 
  Country: None (occurrence: None)
  Receive Date: 20080913
  Receipt Date: 20080825
  Transmission Date: 20090109
  Serious: No
  Sender: FDA-Public Use
  Company Number: US-ABBOTT-08P-163-0472824-00

PATIENT
  Sex: Female
  Weight: 57.658 kg

DRUGS (5)
  1. HUMIRA [Suspect]
     Indication: CROHN'S DISEASE
     Route: 050
     Dates: start: 20060701
  2. MESALAMINE [Concomitant]
     Indication: CROHN'S DISEASE
     Dosage: 400 MG, 2-3 TIMES DAILY
     Route: 048
     Dates: start: 20060101
  3. ALTERNATIVE VITAMINS [Concomitant]
     Indication: DRUG USE FOR UNKNOWN INDICATION
     Dosage: 1-TWICE DAILY
     Route: 048
  4. PANTOPRAZOLE [Concomitant]
     Indication: INTESTINAL RESECTION
     Dosage: 40 MG DAILY
     Route: 048
     Dates: start: 20060501
  5. DIOVAN HCT [Concomitant]
     Indication: HYPERTENSION
     Dosage: 160 MG (2 TABS) DAILY
     Route: 048
     Dates: start: 20060301

REACTIONS (1)
  - PROCEDURAL COMPLICATION [None]
